FAERS Safety Report 22385731 (Version 2)
Quarter: 2023Q2

REPORT INFORMATION
  Report Type: Spontaneous
  Country: US (occurrence: US)
  Receive Date: 20230530
  Receipt Date: 20230602
  Transmission Date: 20230722
  Serious: Yes (Other)
  Sender: FDA-Public Use
  Company Number: US-XERIS PHARMACEUTICALS-2023XER00123

PATIENT
  Sex: Female

DRUGS (1)
  1. RECORLEV [Suspect]
     Active Substance: LEVOKETOCONAZOLE
     Indication: Pituitary-dependent Cushing^s syndrome
     Dosage: ONE TABLET (150 MG), 2X/DAY
     Route: 048
     Dates: start: 202304, end: 20230524

REACTIONS (16)
  - Ear haemorrhage [Unknown]
  - Cortisol increased [Not Recovered/Not Resolved]
  - Panic attack [Recovered/Resolved]
  - Dandruff [Unknown]
  - Lip exfoliation [Unknown]
  - Lip dry [Unknown]
  - Ear dryness [Unknown]
  - Skin fissures [Unknown]
  - Urticaria [Unknown]
  - Pain [Unknown]
  - Seborrhoeic dermatitis [Unknown]
  - Butterfly rash [Unknown]
  - Skin irritation [Unknown]
  - Insomnia [Not Recovered/Not Resolved]
  - Rash [Unknown]
  - Pruritus [Unknown]

NARRATIVE: CASE EVENT DATE: 20230101
